FAERS Safety Report 13689656 (Version 1)
Quarter: 2017Q2

REPORT INFORMATION
  Report Type: Spontaneous
  Country: FR (occurrence: FR)
  Receive Date: 20170626
  Receipt Date: 20170626
  Transmission Date: 20170830
  Serious: Yes (Other)
  Sender: FDA-Public Use
  Company Number: FR-BAYER-2017-120676

PATIENT
  Age: 29 Year
  Sex: Female

DRUGS (2)
  1. MIRENA [Suspect]
     Active Substance: LEVONORGESTREL
     Indication: CONTRACEPTION
     Dosage: 20 MCG/24HR, CONT
     Route: 015
     Dates: start: 2013, end: 2015
  2. MIRENA [Suspect]
     Active Substance: LEVONORGESTREL
     Indication: CONTRACEPTION

REACTIONS (10)
  - Depression [Unknown]
  - Discomfort [Unknown]
  - Decreased appetite [Unknown]
  - Arrhythmia [Unknown]
  - Weight decreased [Unknown]
  - Nausea [Unknown]
  - Stress [Unknown]
  - Libido decreased [Unknown]
  - Anxiety [Unknown]
  - Migraine [Unknown]
